FAERS Safety Report 17136192 (Version 2)
Quarter: 2019Q4

REPORT INFORMATION
  Report Type: Spontaneous
  Country: DK (occurrence: DK)
  Receive Date: 20191210
  Receipt Date: 20191227
  Transmission Date: 20200122
  Serious: Yes (Other)
  Sender: FDA-Public Use
  Company Number: DK-MYLANLABS-2019M1120656

PATIENT
  Age: 39 Year
  Sex: Male
  Weight: 95 kg

DRUGS (12)
  1. CLOZAPIN HEXAL [Suspect]
     Active Substance: CLOZAPINE
     Indication: SCHIZOPHRENIA
     Dosage: 250 MG, UNK (1DGL)
     Route: 048
     Dates: start: 20170215, end: 20170914
  2. CLOZAPIN HEXAL [Suspect]
     Active Substance: CLOZAPINE
     Dosage: 200 MG, UNK (1 DGL)
     Route: 048
     Dates: start: 20170914
  3. DELEPSINE [Suspect]
     Active Substance: VALPROATE SODIUM
     Indication: MOOD SWINGS
     Dosage: STYRKE: 500 MG. DOSIS: 500 MG MORGEN, 1 G TIL NATTEN.
     Route: 048
     Dates: start: 20150202, end: 20170614
  4. CLOZAPIN HEXAL [Suspect]
     Active Substance: CLOZAPINE
     Indication: PSYCHOTIC DISORDER
     Dosage: 150-350 MG, UNK
     Route: 048
  5. LEPONEX [Suspect]
     Active Substance: CLOZAPINE
     Indication: SCHIZOPHRENIA
     Dosage: UNK
     Route: 048
  6. DELEPSINE [Suspect]
     Active Substance: VALPROATE SODIUM
     Indication: MOOD SWINGS
     Dosage: UNK UNK, BID (2,5 ML MORGEN OG 4 ML AFTEN)
     Route: 048
     Dates: start: 20150717
  7. SEROQUEL [Suspect]
     Active Substance: QUETIAPINE FUMARATE
     Indication: MENTAL DISORDER
     Dosage: DOSIS: 500 MG.
     Route: 048
     Dates: start: 20050310
  8. RISPERDAL [Suspect]
     Active Substance: RISPERIDONE
     Indication: MANIA
     Dosage: DOSAGE FORM: UNSPECIFIED
     Route: 065
     Dates: start: 2003, end: 2006
  9. ZIPRASIDON [Suspect]
     Active Substance: ZIPRASIDONE HYDROCHLORIDE
     Indication: MENTAL DISORDER
     Dosage: 20 MILLIGRAM
     Route: 048
  10. ZELDOX [Suspect]
     Active Substance: ZIPRASIDONE
     Indication: MENTAL DISORDER
     Dosage: STYRKE: 20 MG.
     Route: 048
  11. DELEPSINE [Suspect]
     Active Substance: VALPROATE SODIUM
     Indication: MANIA
     Dosage: 500 MG (STRENGTH: 500MG)
     Dates: start: 20150202, end: 20170614
  12. RISPERDAL [Suspect]
     Active Substance: RISPERIDONE
     Indication: SCHIZOPHRENIA

REACTIONS (8)
  - Infertility [Not Recovered/Not Resolved]
  - Hyperprolactinaemia [Not Recovered/Not Resolved]
  - Testicular atrophy [Not Recovered/Not Resolved]
  - Hypogonadism male [Not Recovered/Not Resolved]
  - Erectile dysfunction [Not Recovered/Not Resolved]
  - Hormone level abnormal [Not Recovered/Not Resolved]
  - Sperm concentration decreased [Not Recovered/Not Resolved]
  - Feminisation acquired [Not Recovered/Not Resolved]

NARRATIVE: CASE EVENT DATE: 20160717
